FAERS Safety Report 6528137-1 (Version None)
Quarter: 2010Q1

REPORT INFORMATION
  Report Type: 
  Country: None (occurrence: None)
  Receive Date: 20100105
  Receipt Date: 20100105
  Transmission Date: 20100710
  Serious: Yes (Hospitalization)
  Sender: FDA-Public Use
  Company Number: None

PATIENT
  Sex: Female
  Weight: 129 kg

DRUGS (7)
  1. CYTARABINE [Suspect]
     Dosage: 7650 MG
  2. L-ASPARAGINASE [Suspect]
     Dosage: 15300 UNIT
  3. CEFEPIME [Concomitant]
  4. FLAGYL [Concomitant]
  5. LEVOFLOXACIN [Concomitant]
  6. LINEZOLID [Concomitant]
  7. MEROPENEM [Concomitant]

REACTIONS (13)
  - BLOOD DISORDER [None]
  - CARDIAC ARREST [None]
  - CIRCULATORY COLLAPSE [None]
  - CLOSTRIDIUM DIFFICILE COLITIS [None]
  - ELECTROLYTE IMBALANCE [None]
  - METABOLIC ACIDOSIS [None]
  - NEUTROPHIL COUNT DECREASED [None]
  - NO THERAPEUTIC RESPONSE [None]
  - PNEUMONIA [None]
  - PSEUDOMONAS INFECTION [None]
  - RENAL FAILURE [None]
  - RESPIRATORY DISORDER [None]
  - TACHYPNOEA [None]
